FAERS Safety Report 9574833 (Version 1)
Quarter: 2013Q4

REPORT INFORMATION
  Report Type: Report from Study
  Country: GB (occurrence: GB)
  Receive Date: 20131001
  Receipt Date: 20131001
  Transmission Date: 20140711
  Serious: Yes (Other)
  Sender: FDA-Public Use
  Company Number: GB-ASTRAZENECA-2013SE71111

PATIENT
  Age: 22988 Day
  Sex: Male
  Weight: 89.4 kg

DRUGS (2)
  1. AZD6474 [Suspect]
     Indication: PANCREATIC CARCINOMA
     Route: 048
     Dates: start: 20130830, end: 20130909
  2. GEMCITABINE [Suspect]
     Indication: PANCREATIC CARCINOMA
     Route: 042
     Dates: start: 20130830

REACTIONS (1)
  - Renal failure acute [Recovered/Resolved]
